FAERS Safety Report 4565470-7 (Version None)
Quarter: 2005Q1

REPORT INFORMATION
  Report Type: 
  Country: None (occurrence: None)
  Receive Date: 20050125
  Receipt Date: 20050125
  Transmission Date: 20050727
  Serious: Yes (Hospitalization)
  Sender: FDA-Public Use
  Company Number: None

PATIENT
  Sex: Female

DRUGS (4)
  1. GEMCITABINE [Suspect]
     Indication: BILE DUCT CANCER
     Dosage: 1200 MG/M2    INTRAVENOU
     Route: 042
     Dates: start: 20050120, end: 20050120
  2. IRINOTECAN HCL [Suspect]
     Indication: BILE DUCT CANCER
     Dosage: 125 MG/M2   INTRAVENOU
     Route: 042
     Dates: start: 20050120, end: 20050120
  3. ZOFRAN [Concomitant]
  4. DECADRON [Concomitant]

REACTIONS (3)
  - ABDOMINAL ABSCESS [None]
  - INFECTION [None]
  - PURULENT DISCHARGE [None]
